FAERS Safety Report 9473529 (Version 2)
Quarter: 2013Q3

REPORT INFORMATION
  Report Type: Spontaneous
  Country: US (occurrence: US)
  Receive Date: 20130823
  Receipt Date: 20130823
  Transmission Date: 20140515
  Serious: No
  Sender: FDA-Public Use
  Company Number: US-GALDERMA-US13000878

PATIENT
  Age: 53 Year
  Sex: Female
  Weight: 53 kg

DRUGS (4)
  1. METROGEL (METRONIDAZOLE) GEL, 1% [Suspect]
     Indication: ROSACEA
     Route: 061
     Dates: start: 20130309, end: 20130309
  2. CETAPHIL GENTLE SKIN CLEANSER [Concomitant]
     Indication: THERAPEUTIC SKIN CARE TOPICAL
     Route: 061
  3. CHANTIX [Concomitant]
     Indication: SMOKING CESSATION THERAPY
     Route: 048
  4. EYELINER [Concomitant]

REACTIONS (6)
  - Eyelid oedema [Recovered/Resolved]
  - Skin fragility [Recovered/Resolved]
  - Skin exfoliation [Recovered/Resolved]
  - Pruritus [Recovered/Resolved]
  - Skin burning sensation [Recovered/Resolved]
  - Erythema [Recovered/Resolved]
